FAERS Safety Report 7722255-8 (Version None)
Quarter: 2011Q3

REPORT INFORMATION
  Report Type: 
  Country: None (occurrence: None)
  Receive Date: 20110831
  Receipt Date: 20110819
  Transmission Date: 20111222
  Serious: Yes (Other)
  Sender: FDA-Public Use
  Company Number: CA-ELI_LILLY_AND_COMPANY-CA201108006117

PATIENT
  Sex: Female

DRUGS (3)
  1. ZYPREXA [Suspect]
     Dosage: 5 MG, QD
  2. ZYPREXA [Suspect]
     Dosage: 15 MG, UNK
  3. ZYPREXA [Suspect]
     Dosage: 10 MG, QD

REACTIONS (6)
  - MENOMETRORRHAGIA [None]
  - ASTHENIA [None]
  - WEIGHT INCREASED [None]
  - MUSCULOSKELETAL DISCOMFORT [None]
  - TYPE 2 DIABETES MELLITUS [None]
  - MUSCLE CONTRACTIONS INVOLUNTARY [None]
